FAERS Safety Report 8578875-4 (Version None)
Quarter: 2012Q3

REPORT INFORMATION
  Report Type: 
  Country: None (occurrence: None)
  Receive Date: 20120808
  Receipt Date: 20120730
  Transmission Date: 20120928
  Serious: Yes (Hospitalization, Other)
  Sender: FDA-Public Use
  Company Number: US-ASTRAZENECA-2012SE51334

PATIENT
  Age: 70 Year
  Sex: Female

DRUGS (7)
  1. DICYCLOMINE [Concomitant]
  2. PEPCID [Concomitant]
  3. OXYGEN [Concomitant]
  4. AMPHETAMINES [Concomitant]
  5. METOPROLOL TARTRATE [Concomitant]
  6. NEXIUM [Suspect]
     Route: 048
  7. XANAX [Concomitant]

REACTIONS (7)
  - PNEUMONIA [None]
  - LUNG DISORDER [None]
  - WRIST FRACTURE [None]
  - GASTRITIS [None]
  - ADVERSE EVENT [None]
  - ULCER [None]
  - HYPERTENSION [None]
